FAERS Safety Report 5017314-7 (Version None)
Quarter: 2006Q2

REPORT INFORMATION
  Report Type: 
  Country: None (occurrence: None)
  Receive Date: 20060414
  Receipt Date: 20060213
  Transmission Date: 20061013
  Serious: No
  Sender: FDA-Public Use
  Company Number: 2006SP000770

PATIENT
  Age: 82 Year
  Sex: Female
  Weight: 57.6068 kg

DRUGS (5)
  1. LUNESTA [Suspect]
     Indication: INSOMNIA
     Dosage: 1X; ORAL
     Route: 048
  2. ATORVASTATIN CALCIUM [Concomitant]
  3. ASPIRIN [Concomitant]
  4. ALEVE (CAPLET) [Concomitant]
  5. MULTIVITAMIN [Concomitant]

REACTIONS (1)
  - DYSGEUSIA [None]
